FAERS Safety Report 8221076-X (Version None)
Quarter: 2012Q1

REPORT INFORMATION
  Report Type: 
  Country: None (occurrence: None)
  Receive Date: 20120320
  Receipt Date: 20120308
  Transmission Date: 20120608
  Serious: Yes (Hospitalization)
  Sender: FDA-Public Use
  Company Number: US-ELI_LILLY_AND_COMPANY-US201203003409

PATIENT
  Sex: Female

DRUGS (3)
  1. ADCIRCA [Suspect]
     Indication: PULMONARY HYPERTENSION
     Dosage: 40 MG, QD
     Dates: start: 20120201
  2. ADCIRCA [Suspect]
     Dosage: 20 MG, QD
  3. ADCIRCA [Suspect]
     Dosage: 40 MG, QD
     Dates: start: 20120307

REACTIONS (4)
  - BRONCHITIS [None]
  - SKIN TIGHTNESS [None]
  - CARDIAC FAILURE CONGESTIVE [None]
  - DYSPNOEA [None]
